FAERS Safety Report 8025635-9 (Version None)
Quarter: 2012Q1

REPORT INFORMATION
  Report Type: 
  Country: None (occurrence: None)
  Receive Date: 20120105
  Receipt Date: 20111225
  Transmission Date: 20120608
  Serious: Yes (Death)
  Sender: FDA-Public Use
  Company Number: TW-BAXTER-2011BH039842

PATIENT

DRUGS (4)
  1. NUTRINEAL [Suspect]
     Route: 033
     Dates: start: 20070401
  2. DIANEAL [Suspect]
     Indication: PERITONEAL DIALYSIS
     Route: 033
     Dates: start: 20070401
  3. DIANEAL [Suspect]
     Route: 033
     Dates: start: 20070401
  4. NUTRINEAL [Suspect]
     Indication: PERITONEAL DIALYSIS
     Route: 033
     Dates: start: 20070401

REACTIONS (1)
  - SEPSIS [None]
